FAERS Safety Report 4382003-9 (Version None)
Quarter: 2004Q2

REPORT INFORMATION
  Report Type: 
  Country: None (occurrence: None)
  Receive Date: 20040615
  Receipt Date: 20040609
  Transmission Date: 20050107
  Serious: Yes (Death, Hospitalization)
  Sender: FDA-Public Use
  Company Number: THQ2004A00513

PATIENT
  Age: 67 Year
  Sex: Male

DRUGS (2)
  1. LEUPROLIDE ACETATE [Suspect]
     Indication: PROSTATE CANCER
  2. FLUTAMIDE [Suspect]
     Indication: PROSTATE CANCER

REACTIONS (10)
  - APHASIA [None]
  - CEREBRAL ARTERY OCCLUSION [None]
  - CEREBRAL INFARCTION [None]
  - CEREBRAL ISCHAEMIA [None]
  - DEPRESSED LEVEL OF CONSCIOUSNESS [None]
  - GENERAL PHYSICAL HEALTH DETERIORATION [None]
  - HEMIANOPIA HOMONYMOUS [None]
  - RESPIRATORY FAILURE [None]
  - THROMBIN-ANTITHROMBIN III COMPLEX INCREASED [None]
  - VISUAL ACUITY REDUCED [None]
